FAERS Safety Report 11826551 (Version 2)
Quarter: 2015Q4

REPORT INFORMATION
  Report Type: Spontaneous
  Country: ES (occurrence: ES)
  Receive Date: 20151211
  Receipt Date: 20151224
  Transmission Date: 20160305
  Serious: Yes (Death, Life-Threatening, Hospitalization, Disabling)
  Sender: FDA-Public Use
  Company Number: ES-OTSUKA-2015_012378

PATIENT
  Age: 51 Year
  Sex: Female
  Weight: 104 kg

DRUGS (2)
  1. DACOGEN [Suspect]
     Active Substance: DECITABINE
     Dosage: 41 MG
     Route: 042
     Dates: start: 20151116
  2. DACOGEN [Suspect]
     Active Substance: DECITABINE
     Indication: ACUTE MYELOID LEUKAEMIA
     Dosage: 41 MG
     Route: 042
     Dates: start: 20150908, end: 20151009

REACTIONS (5)
  - Lung infection [Recovering/Resolving]
  - Upper gastrointestinal haemorrhage [Not Recovered/Not Resolved]
  - Device related infection [Recovered/Resolved]
  - Pulmonary haemorrhage [Fatal]
  - Febrile neutropenia [Not Recovered/Not Resolved]

NARRATIVE: CASE EVENT DATE: 20151127
